FAERS Safety Report 24873957 (Version 1)
Quarter: 2025Q1

REPORT INFORMATION
  Report Type: Report from Study
  Country: DE (occurrence: DE)
  Receive Date: 20250122
  Receipt Date: 20250122
  Transmission Date: 20250409
  Serious: No
  Sender: ROCHE
  Company Number: DE-ML39632-2408703-1

PATIENT
  Age: 39 Year
  Sex: Female

DRUGS (3)
  1. OCREVUS [Suspect]
     Active Substance: OCRELIZUMAB
     Indication: Relapsing multiple sclerosis
     Route: 042
     Dates: start: 20220905, end: 20240319
  2. OCREVUS [Suspect]
     Active Substance: OCRELIZUMAB
     Route: 058
     Dates: start: 20240924
  3. OCREVUS [Suspect]
     Active Substance: OCRELIZUMAB
     Route: 042
     Dates: start: 20220218, end: 20220307

REACTIONS (1)
  - Herpes zoster [Recovered/Resolved]

NARRATIVE: CASE EVENT DATE: 20241215
